FAERS Safety Report 4383407-0 (Version None)
Quarter: 2004Q2

REPORT INFORMATION
  Report Type: 
  Country: None (occurrence: None)
  Receive Date: 20040623
  Receipt Date: 20040311
  Transmission Date: 20050107
  Serious: Yes (Other)
  Sender: FDA-Public Use
  Company Number: PHNU2004DE01205

PATIENT
  Age: 53 Year
  Sex: Female
  Weight: 112 kg

DRUGS (2)
  1. LEPONEX / CLOZARIL (CLOZAPINE) [Suspect]
     Indication: SCHIZOPHRENIA
     Dosage: UNKNOWN
     Route: 048
     Dates: start: 19940101
  2. LEPONEX / CLOZARIL (CLOZAPINE) [Suspect]
     Dosage: 450 MG/DAY
     Route: 048
     Dates: end: 20040406

REACTIONS (4)
  - ELECTROCARDIOGRAM ABNORMAL [None]
  - ELECTROCARDIOGRAM REPOLARISATION ABNORMALITY [None]
  - ELECTROCARDIOGRAM T WAVE INVERSION [None]
  - ENDOCARDITIS [None]
